FAERS Safety Report 14305931 (Version 4)
Quarter: 2018Q2

REPORT INFORMATION
  Report Type: Spontaneous
  Country: US (occurrence: US)
  Receive Date: 20171219
  Receipt Date: 20180423
  Transmission Date: 20180711
  Serious: Yes (Hospitalization)
  Sender: FDA-Public Use
  Company Number: US-DSJP-DSU-2017-149669

PATIENT

DRUGS (2)
  1. BENICAR HCT [Suspect]
     Active Substance: HYDROCHLOROTHIAZIDE\OLMESARTAN MEDOXOMIL
     Indication: PRODUCT USED FOR UNKNOWN INDICATION
     Dosage: 20/12.5 MG, QD
     Route: 048
     Dates: start: 201410, end: 20151117
  2. BENICAR HCT [Suspect]
     Active Substance: HYDROCHLOROTHIAZIDE\OLMESARTAN MEDOXOMIL
     Dosage: 40/25 MG, QD
     Route: 048
     Dates: start: 201410

REACTIONS (6)
  - Weight decreased [Recovered/Resolved]
  - Gastrooesophageal reflux disease [Recovering/Resolving]
  - Constipation [Unknown]
  - Dehydration [Unknown]
  - Flatulence [Unknown]
  - Syncope [Unknown]

NARRATIVE: CASE EVENT DATE: 20141027
